FAERS Safety Report 4822645-7 (Version None)
Quarter: 2005Q4

REPORT INFORMATION
  Report Type: 
  Country: None (occurrence: None)
  Receive Date: 20051104
  Receipt Date: 20051028
  Transmission Date: 20060501
  Serious: Yes (Other)
  Sender: FDA-Public Use
  Company Number: HQWYE804203FEB04

PATIENT
  Age: 16 Year
  Sex: Male

DRUGS (3)
  1. EFFEXOR [Suspect]
     Indication: SOCIAL PHOBIA
     Dosage: SEE IMAGE, ORAL
     Route: 048
  2. PAXIL [Suspect]
     Indication: DEPRESSION
     Dosage: SEE IMAGE
     Dates: end: 20010101
  3. PAXIL [Suspect]
     Indication: SOCIAL PHOBIA
     Dosage: SEE IMAGE
     Dates: end: 20010101

REACTIONS (12)
  - AGGRESSION [None]
  - AMNESIA [None]
  - CONDITION AGGRAVATED [None]
  - DEPRESSION [None]
  - DIZZINESS [None]
  - FEELING ABNORMAL [None]
  - HEADACHE [None]
  - HOMICIDAL IDEATION [None]
  - IMPRISONMENT [None]
  - PARAESTHESIA [None]
  - SOMNOLENCE [None]
  - SUICIDAL IDEATION [None]
